FAERS Safety Report 7656889-6 (Version None)
Quarter: 2011Q3

REPORT INFORMATION
  Report Type: 
  Country: None (occurrence: None)
  Receive Date: 20110802
  Receipt Date: 20110720
  Transmission Date: 20111222
  Serious: Yes (Other)
  Sender: FDA-Public Use
  Company Number: GER/UKI/11/0019137

PATIENT
  Age: 78 Year
  Sex: Female

DRUGS (3)
  1. LEVOTHYROXINE SODIUM [Concomitant]
  2. HYDROXYZINE [Concomitant]
  3. CLOPIDOGREL [Suspect]
     Indication: CEREBROVASCULAR ACCIDENT
     Dosage: 75 MG, ORAL
     Route: 048
     Dates: start: 20101203, end: 20101224

REACTIONS (2)
  - PRODUCT SUBSTITUTION ISSUE [None]
  - CELLULITIS [None]
